FAERS Safety Report 23158797 (Version 1)
Quarter: 2023Q4

REPORT INFORMATION
  Report Type: Report from Study
  Country: TH (occurrence: TH)
  Receive Date: 20231108
  Receipt Date: 20231108
  Transmission Date: 20240110
  Serious: Yes (Other)
  Sender: FDA-Public Use
  Company Number: TH-002147023-NVSC2023TH235914

PATIENT
  Sex: Female

DRUGS (17)
  1. KISQALI [Suspect]
     Active Substance: RIBOCICLIB
     Indication: Breast cancer metastatic
     Dosage: 3 DOSAGE FORM, QD (3 TABLETS, ONCE DAILY AFTER BREAKFAST) (AMOUNT 63 TABLETS)
     Route: 048
  2. FEMARA [Suspect]
     Active Substance: LETROZOLE
     Indication: Product used for unknown indication
     Dosage: 1 DOSAGE FORM, QD  (1 TABLET, ONCE DAILY AFTER BREAKFAST) (AMOUNT 30 TABLETS)
     Route: 048
  3. MANIDIPINE [Concomitant]
     Active Substance: MANIDIPINE
     Indication: Product used for unknown indication
     Dosage: 1 DOSAGE FORM, QD (ONCE DAILY AFTER BREAKFAST) (AMOUNT 30 TABLETS)  (APPEARS ON THE PRESCRIPTIONS DA
     Route: 065
  4. OMEPRAZOLE [Concomitant]
     Active Substance: OMEPRAZOLE
     Indication: Product used for unknown indication
     Dosage: UNK (AMOUNT 30 TABLETS, TAKE 1 CAPSULE ONCE DAILY BEFORE BREAKFAST)
     Route: 065
  5. ETORICOXIB [Concomitant]
     Active Substance: ETORICOXIB
     Indication: Product used for unknown indication
     Dosage: 1 DOSAGE FORM, QD (AMOUNT 30 TABLETS) (TAKE 1 TABLET ONCE DAILY AFTER BREAKFAST)
     Route: 065
  6. CALCIUM CARBONATE [Concomitant]
     Active Substance: CALCIUM CARBONATE
     Indication: Product used for unknown indication
     Dosage: 1 DOSAGE FORM, BID (AMOUNT 60 TABLETS) ( TAKE 1 TABLET 2 TIMES DAILY AFTER BREAKFAST-DINNER)
     Route: 065
  7. MORPHINE [Concomitant]
     Active Substance: MORPHINE
     Indication: Product used for unknown indication
     Dosage: 1 DOSAGE FORM, Q8H (AMOUNT 90 TABLETS) (, TAKE 1 TABLET EVERY 8 HOURS WHEN SYMPTOMS APPEAR)
     Route: 065
  8. VITAMIN D2 [Concomitant]
     Active Substance: ERGOCALCIFEROL
     Indication: Product used for unknown indication
     Dosage: 1 DOSAGE FORM, Q2W (AMOUNT 2 TABLETS TAKE 1 TABLET EVERY 2 WEEKS)
     Route: 065
  9. GABAPENTIN [Concomitant]
     Active Substance: GABAPENTIN
     Indication: Product used for unknown indication
     Dosage: 1 DOSAGE FORM, QD (AMOUNT 30 TABLETS, TAKE 1 TABLET ONCE DAILY BEFORE BEDTIME )
     Route: 065
  10. LOPERAMIDE [Concomitant]
     Active Substance: LOPERAMIDE
     Indication: Bowel movement irregularity
     Dosage: UNK (AMOUNT 20 TABLETS, TAKE 1 CAPSULE WHEN HAVING A BOWEL MOVEMENT)
     Route: 065
  11. DICYCLOMINE [Concomitant]
     Active Substance: DICYCLOMINE HYDROCHLORIDE
     Indication: Product used for unknown indication
     Dosage: 1 DOSAGE FORM, TID (AMOUNT 40 TABLETS, TAKE 1 TABLET 3 TIMES DAILY AFTER MEALS)
     Route: 065
  12. FERROUS FUMARATE [Concomitant]
     Active Substance: FERROUS FUMARATE
     Indication: Product used for unknown indication
     Dosage: 1 DOSAGE FORM, TID (AMOUNT 90 TABLETS, TAKE 1 TABLET 3 TIMES DAILY AFTER BREAKFAST-LUNCH-DINNER)
     Route: 065
  13. FOLIC ACID [Concomitant]
     Active Substance: FOLIC ACID
     Indication: Product used for unknown indication
     Dosage: 1 DOSAGE FORM, QD (AMOUNT 30 TABLETS, TAKE 1 TABLET ONCE DAILY AFTER BREAKFAST )
     Route: 065
  14. ONDANSETRON [Concomitant]
     Active Substance: ONDANSETRON
     Indication: Product used for unknown indication
     Dosage: 1 DOSAGE FORM, QD (AMOUNT 30 TABLETS, TAKE 1 TABLET ONCE DAILY BEFORE BREAKFAST)
     Route: 065
  15. KCL [Concomitant]
     Active Substance: POTASSIUM CHLORIDE
     Indication: Product used for unknown indication
     Dosage: UNK ((20 MEQ/15 ML), AMOUNT 1 BOTTLE, TAKE 30 CC IMMEDIATELY)
     Route: 065
  16. PREGABALIN [Concomitant]
     Active Substance: PREGABALIN
     Indication: Product used for unknown indication
     Dosage: UNK (AMOUNT 30 TABLETS, TAKE 1 CAPSULE BEFORE BEDTIME)
     Route: 065
  17. ELIGARD [Concomitant]
     Active Substance: LEUPROLIDE ACETATE
     Indication: Product used for unknown indication
     Dosage: UNK (AMOUNT 1 VIAL AS ORDERED BY THE DOCTOR)
     Route: 065

REACTIONS (2)
  - Second primary malignancy [Unknown]
  - Weight decreased [Unknown]
